FAERS Safety Report 5409840-3 (Version None)
Quarter: 2007Q3

REPORT INFORMATION
  Report Type: 
  Country: None (occurrence: None)
  Receive Date: 20070809
  Receipt Date: 20070801
  Transmission Date: 20080115
  Serious: Yes (Hospitalization)
  Sender: FDA-Public Use
  Company Number: CZ-PURDUE-DEU_2007_0002869

PATIENT
  Age: 49 Year
  Sex: Female
  Weight: 92 kg

DRUGS (7)
  1. OXYGESIC KAPSELN [Suspect]
     Indication: PAIN
     Route: 048
     Dates: start: 20070104, end: 20070107
  2. LOKREN [Concomitant]
  3. CIPRALEX [Concomitant]
  4. IXEL [Concomitant]
  5. DULCOLAX [Concomitant]
  6. OXYCODONE HCL [Suspect]
     Indication: PAIN
     Dosage: 20 MG, BID
     Route: 048
     Dates: start: 20070104, end: 20070107
  7. TORVACARD [Concomitant]

REACTIONS (2)
  - ANGINA PECTORIS [None]
  - CORONARY ARTERY STENOSIS [None]
